FAERS Safety Report 9262008 (Version 1)
Quarter: 2013Q2

REPORT INFORMATION
  Report Type: Spontaneous
  Country: US (occurrence: US)
  Receive Date: 20130429
  Receipt Date: 20130429
  Transmission Date: 20140414
  Serious: No
  Sender: FDA-Public Use
  Company Number: US-BAYER-2013-049922

PATIENT
  Age: 61 Year
  Sex: Male
  Weight: 90.7 kg

DRUGS (3)
  1. BAYER ASPIRIN REGIMEN ADULT LOW STRENGTH [Suspect]
     Indication: ARTHRITIS
     Dosage: UNK UNK, PRN
     Route: 048
  2. ALEVE CAPLET [Suspect]
     Route: 048
  3. PEPCID [Concomitant]

REACTIONS (3)
  - Gastrointestinal inflammation [Recovered/Resolved]
  - Epigastric discomfort [Recovered/Resolved]
  - Abdominal discomfort [Recovered/Resolved]
